FAERS Safety Report 7655527-6 (Version None)
Quarter: 2011Q3

REPORT INFORMATION
  Report Type: 
  Country: None (occurrence: None)
  Receive Date: 20110804
  Receipt Date: 20110801
  Transmission Date: 20111222
  Serious: Yes (Hospitalization, Other)
  Sender: FDA-Public Use
  Company Number: US-BRISTOL-MYERS SQUIBB COMPANY-15556822

PATIENT
  Age: 72 Year
  Sex: Female

DRUGS (4)
  1. METFORMIN HCL [Suspect]
     Indication: DIABETES MELLITUS
  2. BLINDED: SAXAGLIPTIN [Suspect]
     Indication: TYPE 2 DIABETES MELLITUS
     Dosage: 1 DF= 2.5MG OR 5 MG
     Dates: start: 20101026
  3. INSULIN [Suspect]
     Indication: DIABETES MELLITUS
     Dosage: BEFORE RANDAMIZATION-28NOV10,29NOV10-CONT (22IU).
  4. PLACEBO [Suspect]
     Indication: TYPE 2 DIABETES MELLITUS
     Dates: start: 20101026

REACTIONS (2)
  - FEMORAL ARTERY OCCLUSION [None]
  - GASTROENTERITIS CRYPTOSPORIDIAL [None]
